FAERS Safety Report 8827189 (Version 2)
Quarter: 2012Q4

REPORT INFORMATION
  Report Type: 
  Country: AT (occurrence: AT)
  Receive Date: 20121005
  Receipt Date: 20121029
  Transmission Date: 20130627
  Serious: Yes (Other)
  Sender: FDA-Public Use
  Company Number: AT-JNJFOC-20121003352

PATIENT
  Age: 65 Year
  Sex: Male

DRUGS (2)
  1. XARELTO [Suspect]
     Indication: PULMONARY EMBOLISM
     Route: 065
     Dates: start: 201203
  2. XARELTO [Suspect]
     Indication: PULMONARY EMBOLISM
     Route: 065

REACTIONS (1)
  - Thrombophlebitis [Unknown]
